FAERS Safety Report 21938888 (Version 1)
Quarter: 2023Q1

REPORT INFORMATION
  Report Type: Spontaneous
  Country: US (occurrence: US)
  Receive Date: 20230201
  Receipt Date: 20230201
  Transmission Date: 20230418
  Serious: Yes (Other)
  Sender: FDA-Public Use
  Company Number: US-EXELIXIS-CABO-22051412

PATIENT
  Age: 76 Year
  Sex: Female

DRUGS (3)
  1. CABOMETYX [Suspect]
     Active Substance: CABOZANTINIB S-MALATE
     Indication: Renal cell carcinoma
     Dosage: 40 MG, QD
     Route: 048
     Dates: start: 2019
  2. CABOMETYX [Suspect]
     Active Substance: CABOZANTINIB S-MALATE
     Dosage: ALTERNATING 20 MG ONE DAY AND 40MG THE NEXT DAY
     Route: 048
     Dates: start: 2021
  3. CABOMETYX [Suspect]
     Active Substance: CABOZANTINIB S-MALATE
     Dosage: ALTERNATING 20 MG ONE DAY AND 40MG THE NEXT DAY
     Route: 048

REACTIONS (14)
  - Weight decreased [Not Recovered/Not Resolved]
  - Metastases to breast [Not Recovered/Not Resolved]
  - Localised infection [Recovered/Resolved]
  - Contusion [Unknown]
  - Erythema [Not Recovered/Not Resolved]
  - Skin ulcer [Recovered/Resolved]
  - Alopecia [Unknown]
  - Decreased appetite [Not Recovered/Not Resolved]
  - Constipation [Not Recovered/Not Resolved]
  - Diarrhoea [Not Recovered/Not Resolved]
  - Nausea [Recovering/Resolving]
  - Metastases to adrenals [Not Recovered/Not Resolved]
  - Metastases to pancreas [Not Recovered/Not Resolved]
  - Metastases to liver [Not Recovered/Not Resolved]
